FAERS Safety Report 10512063 (Version 4)
Quarter: 2015Q2

REPORT INFORMATION
  Report Type: Spontaneous
  Country: JP (occurrence: JP)
  Receive Date: 20141010
  Receipt Date: 20150429
  Transmission Date: 20150821
  Serious: Yes (Life-Threatening, Hospitalization)
  Sender: FDA-Public Use
  Company Number: JP-BAUSCH-SYM-2013-12698

PATIENT
  Age: 34 Year
  Sex: Female
  Weight: 38 kg

DRUGS (24)
  1. CHOREAZINE TABLETS 12.5 MG [Suspect]
     Active Substance: TETRABENAZINE
     Indication: HUNTINGTON^S DISEASE
     Route: 048
     Dates: start: 20130611, end: 20131101
  2. CHOREAZINE TABLETS 12.5 MG [Suspect]
     Active Substance: TETRABENAZINE
     Route: 048
     Dates: start: 20130410, end: 20130423
  3. CHOREAZINE TABLETS 12.5 MG [Suspect]
     Active Substance: TETRABENAZINE
     Route: 048
     Dates: start: 20130424, end: 20130507
  4. PZC [Suspect]
     Active Substance: PERPHENAZINE
     Dosage: DAILY
     Route: 048
     Dates: start: 20130221, end: 20130609
  5. SERENACE [Suspect]
     Active Substance: HALOPERIDOL
     Indication: HUNTINGTON^S DISEASE
     Dosage: DAILY
     Route: 048
     Dates: start: 20110614, end: 20130609
  6. GASTER [Concomitant]
     Active Substance: FAMOTIDINE
     Indication: CHRONIC GASTRITIS
     Route: 048
     Dates: start: 20130410, end: 20131101
  7. CEFZON [Concomitant]
     Active Substance: CEFDINIR
     Route: 048
     Dates: start: 20131028, end: 20131101
  8. LENDORMIN D [Concomitant]
     Active Substance: BROTIZOLAM
     Indication: INSOMNIA
     Route: 048
     Dates: start: 20130410, end: 20131101
  9. PL [Concomitant]
     Active Substance: ACETAMINOPHEN\CAFFEINE\PROMETHAZINE\SALICYLAMIDE
     Indication: UPPER RESPIRATORY TRACT INFLAMMATION
     Route: 048
     Dates: start: 20131028, end: 20131101
  10. CHOREAZINE TABLETS 12.5 MG [Suspect]
     Active Substance: TETRABENAZINE
     Route: 048
     Dates: start: 20130515, end: 20130610
  11. ROZEREM [Concomitant]
     Active Substance: RAMELTEON
     Indication: INSOMNIA
     Route: 048
     Dates: start: 20130410, end: 20131101
  12. LOXONIN [Concomitant]
     Active Substance: LOXOPROFEN SODIUM
     Indication: PRODUCT USED FOR UNKNOWN INDICATION
     Route: 048
     Dates: start: 20130509
  13. CEFZON [Concomitant]
     Active Substance: CEFDINIR
     Indication: PRODUCT USED FOR UNKNOWN INDICATION
     Route: 048
     Dates: start: 20130422, end: 20130520
  14. CHOREAZINE TABLETS 12.5 MG [Suspect]
     Active Substance: TETRABENAZINE
     Route: 048
     Dates: start: 20130508, end: 20130514
  15. PZC [Suspect]
     Active Substance: PERPHENAZINE
     Indication: HUNTINGTON^S DISEASE
     Dosage: DAILY
     Route: 048
     Dates: start: 20110815, end: 20110912
  16. PZC [Suspect]
     Active Substance: PERPHENAZINE
     Dosage: DAILY
     Route: 048
     Dates: start: 20120405, end: 20120604
  17. SERENACE [Suspect]
     Active Substance: HALOPERIDOL
     Dosage: DAILY
     Route: 048
     Dates: start: 20130610, end: 20131101
  18. ARASENA-A [Concomitant]
     Active Substance: VIDARABINE
     Indication: PRODUCT USED FOR UNKNOWN INDICATION
     Dates: start: 20131109
  19. CERCINE [Concomitant]
     Active Substance: DIAZEPAM
     Indication: PRODUCT USED FOR UNKNOWN INDICATION
     Route: 048
     Dates: start: 20131115
  20. PZC [Suspect]
     Active Substance: PERPHENAZINE
     Dosage: DAILY
     Route: 048
     Dates: start: 20110913, end: 20111116
  21. PZC [Suspect]
     Active Substance: PERPHENAZINE
     Dosage: DAILY
     Route: 048
     Dates: start: 20111117, end: 20120404
  22. PZC [Suspect]
     Active Substance: PERPHENAZINE
     Dosage: DAILY
     Route: 048
     Dates: start: 20120605, end: 20130220
  23. PZC [Suspect]
     Active Substance: PERPHENAZINE
     Dosage: DAILY
     Route: 048
     Dates: start: 20130610, end: 20131101
  24. CEFZON [Concomitant]
     Active Substance: CEFDINIR
     Route: 048
     Dates: start: 20130708, end: 20130712

REACTIONS (3)
  - Somnolence [Recovered/Resolved]
  - Enterocolitis [Recovered/Resolved]
  - Neuroleptic malignant syndrome [Recovered/Resolved]

NARRATIVE: CASE EVENT DATE: 20130601
